FAERS Safety Report 9336964 (Version 1)
Quarter: 2013Q2

REPORT INFORMATION
  Report Type: Spontaneous
  Country: FR (occurrence: FR)
  Receive Date: 20130607
  Receipt Date: 20130607
  Transmission Date: 20140414
  Serious: Yes (Life-Threatening)
  Sender: FDA-Public Use
  Company Number: FR-MERCK-1305FRA017865

PATIENT
  Age: 47 Year
  Sex: Male

DRUGS (2)
  1. TEMODAL [Suspect]
     Dosage: UNK
     Route: 048
     Dates: start: 20130206
  2. BICNU [Suspect]
     Dosage: UNK
     Route: 042
     Dates: start: 2012, end: 20130111

REACTIONS (1)
  - Lung disorder [Not Recovered/Not Resolved]
